FAERS Safety Report 23122429 (Version 1)
Quarter: 2023Q4

REPORT INFORMATION
  Report Type: Spontaneous
  Country: RO (occurrence: RO)
  Receive Date: 20231030
  Receipt Date: 20231030
  Transmission Date: 20240110
  Serious: Yes (Other)
  Sender: FDA-Public Use
  Company Number: RO-Accord-387950

PATIENT
  Age: 33 Year
  Sex: Female

DRUGS (2)
  1. LEVOTHYROXINE [Suspect]
     Active Substance: LEVOTHYROXINE
     Indication: Autoimmune thyroiditis
     Dosage: 7 YEARS OF TREATMENT WITH THE SAME DOSE
  2. LEVOTHYROXINE [Suspect]
     Active Substance: LEVOTHYROXINE
     Indication: Hypothyroidism
     Dosage: 7 YEARS OF TREATMENT WITH THE SAME DOSE

REACTIONS (3)
  - Endocrine ophthalmopathy [Recovering/Resolving]
  - Hyperthyroidism [Recovering/Resolving]
  - Off label use [Unknown]
